FAERS Safety Report 7334901-1 (Version None)
Quarter: 2011Q1

REPORT INFORMATION
  Report Type: 
  Country: None (occurrence: None)
  Receive Date: 20110307
  Receipt Date: 20110223
  Transmission Date: 20110831
  Serious: Yes (Death, Life-Threatening, Hospitalization, Other)
  Sender: FDA-Public Use
  Company Number: FR-ROCHE-687694

PATIENT
  Sex: Female
  Weight: 55 kg

DRUGS (6)
  1. ARAVA [Suspect]
     Route: 048
     Dates: start: 20090312, end: 20090415
  2. CORTANCYL [Concomitant]
     Route: 048
     Dates: start: 20070701
  3. APRANAX [Suspect]
     Dosage: 1 TABLET IN THE MORNING AND 1 TABLET IN THE EVENING
     Route: 048
     Dates: start: 20090312, end: 20090415
  4. HEPARIN CALCIUM [Concomitant]
  5. PRETERAX [Concomitant]
     Dates: start: 20060101
  6. CORTANCYL [Concomitant]
     Dosage: START DATE REPORTED AS 2006
     Route: 048
     Dates: end: 20060301

REACTIONS (19)
  - HISTIOCYTOSIS HAEMATOPHAGIC [None]
  - GASTROINTESTINAL HAEMORRHAGE [None]
  - CYTOLYTIC HEPATITIS [None]
  - DRUG RASH WITH EOSINOPHILIA AND SYSTEMIC SYMPTOMS [None]
  - VISUAL ACUITY REDUCED [None]
  - OESOPHAGITIS HAEMORRHAGIC [None]
  - ENTEROCOLITIS INFECTIOUS [None]
  - OESOPHAGITIS [None]
  - ODYNOPHAGIA [None]
  - HIATUS HERNIA [None]
  - PSORIATIC ARTHROPATHY [None]
  - HYPOKALAEMIA [None]
  - NECROSIS [None]
  - OESOPHAGEAL CANDIDIASIS [None]
  - HYPONATRAEMIA [None]
  - OESOPHAGEAL ULCER [None]
  - GASTRITIS [None]
  - DEHYDRATION [None]
  - INFLAMMATION [None]
